FAERS Safety Report 8606176 (Version 5)
Quarter: 2012Q4

REPORT INFORMATION
  Report Type: 
  Country: US (occurrence: US)
  Receive Date: 20120608
  Receipt Date: 20121108
  Transmission Date: 20130627
  Serious: No
  Sender: FDA-Public Use
  Company Number: US-ASTRAZENECA-2011SE48128

PATIENT
  Age: 73 Year
  Sex: Female

DRUGS (2)
  1. ATACAND [Suspect]
     Route: 048
  2. NEXIUM [Suspect]
     Indication: CROHN^S DISEASE
     Route: 048

REACTIONS (7)
  - Hypertension [Unknown]
  - Sinusitis [Unknown]
  - Gastric disorder [Unknown]
  - Crohn^s disease [Unknown]
  - Heart rate increased [Unknown]
  - Malaise [Unknown]
  - Drug dose omission [Unknown]
